FAERS Safety Report 8765068 (Version 1)
Quarter: 2012Q4

REPORT INFORMATION
  Report Type: 
  Country: US (occurrence: US)
  Receive Date: 20120903
  Receipt Date: 20120903
  Transmission Date: 20130627
  Serious: No
  Sender: FDA-Public Use
  Company Number: US-BIOGENIDEC-2012BI034128

PATIENT
  Age: 33 Year
  Sex: Female

DRUGS (2)
  1. TYSABRI [Suspect]
     Indication: MULTIPLE SCLEROSIS
     Route: 042
     Dates: start: 20120817
  2. FIORICET [Concomitant]
     Indication: MIGRAINE

REACTIONS (5)
  - Abdominal pain upper [Not Recovered/Not Resolved]
  - Diarrhoea [Not Recovered/Not Resolved]
  - Migraine [Not Recovered/Not Resolved]
  - Lethargy [Not Recovered/Not Resolved]
  - Fatigue [Not Recovered/Not Resolved]
